FAERS Safety Report 7409977-3 (Version None)
Quarter: 2011Q2

REPORT INFORMATION
  Report Type: 
  Country: None (occurrence: None)
  Receive Date: 20110412
  Receipt Date: 20110407
  Transmission Date: 20111010
  Serious: Yes (Other)
  Sender: FDA-Public Use
  Company Number: US-ABBOTT-11P-163-0717602-00

PATIENT
  Sex: Female
  Weight: 77.18 kg

DRUGS (10)
  1. ASPIRIN [Concomitant]
     Indication: PRODUCT USED FOR UNKNOWN INDICATION
  2. SIMCOR [Suspect]
     Indication: BLOOD TRIGLYCERIDES INCREASED
     Dosage: AT BEDTIME
     Dates: start: 20101101
  3. CYMBALTA [Concomitant]
     Indication: DEPRESSION
  4. SYNTHROID [Concomitant]
     Indication: HYPOTHYROIDISM
  5. TICLOPIDINE HCL [Concomitant]
     Indication: ANTICOAGULANT THERAPY
  6. LOSARTAN [Concomitant]
     Indication: HYPERTENSION
  7. FISH OIL [Concomitant]
     Indication: SUPPLEMENTATION THERAPY
  8. XANAX [Concomitant]
     Indication: ANXIETY
  9. CARVEDILOL [Concomitant]
     Indication: HYPERTENSION
  10. NITROGLYCERIN [Concomitant]
     Indication: CHEST PAIN

REACTIONS (6)
  - CHEST PAIN [None]
  - PARAESTHESIA [None]
  - VITAMIN D DEFICIENCY [None]
  - PRURITUS GENERALISED [None]
  - SKIN BURNING SENSATION [None]
  - KIDNEY INFECTION [None]
